FAERS Safety Report 23420941 (Version 1)
Quarter: 2024Q1

REPORT INFORMATION
  Report Type: Spontaneous
  Country: DE (occurrence: DE)
  Receive Date: 20240119
  Receipt Date: 20240119
  Transmission Date: 20240409
  Serious: Yes (Hospitalization)
  Sender: FDA-Public Use
  Company Number: DE-ABBVIE-5588768

PATIENT
  Age: 63 Year
  Sex: Male
  Weight: 103 kg

DRUGS (14)
  1. HUMIRA [Suspect]
     Active Substance: ADALIMUMAB
     Indication: Rheumatoid arthritis
     Route: 058
     Dates: start: 2019, end: 2021
  2. RINVOQ [Suspect]
     Active Substance: UPADACITINIB
     Indication: Product used for unknown indication
     Dosage: LAST ADMIN DATE: 2023
     Route: 048
     Dates: start: 202301
  3. RINVOQ [Suspect]
     Active Substance: UPADACITINIB
     Indication: Product used for unknown indication
     Route: 048
  4. ATORVASTATIN [Concomitant]
     Active Substance: ATORVASTATIN
     Indication: Product used for unknown indication
  5. PANTOPRAZOLE [Concomitant]
     Active Substance: PANTOPRAZOLE
     Indication: Product used for unknown indication
  6. ACTRAPHANE [Concomitant]
     Active Substance: INSULIN HUMAN
     Indication: Product used for unknown indication
     Dosage: FREQUENCY TEXT: VARIABLE 15IU
  7. NOVORAPID [Concomitant]
     Active Substance: INSULIN ASPART
     Indication: Product used for unknown indication
     Dosage: FREQUENCY TEXT: VARIABLE 6IE
  8. AZATHIOPRINE [Suspect]
     Active Substance: AZATHIOPRINE
     Indication: Bone pain
     Route: 065
     Dates: start: 202110
  9. BISOPROLOL [Concomitant]
     Active Substance: BISOPROLOL\BISOPROLOL FUMARATE
     Indication: Product used for unknown indication
  10. Salofalk [Concomitant]
     Indication: Product used for unknown indication
     Dates: start: 2002
  11. PREDNISOLONE [Concomitant]
     Active Substance: PREDNISOLONE
     Indication: Product used for unknown indication
  12. CHOLECALCIFEROL [Concomitant]
     Active Substance: CHOLECALCIFEROL
     Indication: Product used for unknown indication
  13. MOXONIDINE [Concomitant]
     Active Substance: MOXONIDINE
     Indication: Product used for unknown indication
  14. ZOSTER [Concomitant]
     Indication: Immunisation
     Dosage: VACCINE

REACTIONS (15)
  - Colitis ulcerative [Unknown]
  - Myoglobin blood increased [Not Recovered/Not Resolved]
  - Obstructive sleep apnoea syndrome [Unknown]
  - Positive airway pressure therapy [Unknown]
  - Hypertension [Unknown]
  - Platelet count decreased [Unknown]
  - Bone pain [Unknown]
  - Blood creatine phosphokinase increased [Not Recovered/Not Resolved]
  - Gynaecomastia [Unknown]
  - Iron deficiency anaemia [Unknown]
  - Type 1 diabetes mellitus [Unknown]
  - Haematocrit decreased [Unknown]
  - Vitamin D deficiency [Unknown]
  - Haemoglobin decreased [Unknown]
  - Osteoarthritis [Unknown]

NARRATIVE: CASE EVENT DATE: 20230622
